FAERS Safety Report 8909938 (Version 1)
Quarter: 2012Q4

REPORT INFORMATION
  Report Type: 
  Country: US (occurrence: US)
  Receive Date: 20121115
  Receipt Date: 20121115
  Transmission Date: 20130627
  Serious: No
  Sender: FDA-Public Use
  Company Number: US-PFIZER INC-2012285384

PATIENT
  Sex: Male

DRUGS (2)
  1. ATORVASTATIN CALCIUM [Suspect]
     Dosage: UNK
  2. LIPITOR [Concomitant]
     Dosage: 20 mg, 1x/day

REACTIONS (2)
  - Muscle tightness [Recovered/Resolved]
  - Paraesthesia [Recovered/Resolved]
